FAERS Safety Report 10018145 (Version 1)
Quarter: 2014Q1

REPORT INFORMATION
  Report Type: Spontaneous
  Country: FR (occurrence: FR)
  Receive Date: 20140318
  Receipt Date: 20140318
  Transmission Date: 20141002
  Serious: Yes (Hospitalization)
  Sender: FDA-Public Use
  Company Number: FR-TEVA-467614ISR

PATIENT
  Age: 70 Year
  Sex: Male

DRUGS (9)
  1. METHOTREXATE TEVA [Suspect]
     Indication: DIFFUSE LARGE B-CELL LYMPHOMA STAGE IV
     Dosage: 5800 MILLIGRAM DAILY;
     Route: 041
     Dates: start: 20130916, end: 20130916
  2. EUPANTOL [Interacting]
     Dosage: 20 MILLIGRAM DAILY;
     Route: 048
     Dates: start: 20130916
  3. EMEND 125 MG [Concomitant]
     Route: 048
     Dates: start: 20130916, end: 20130919
  4. SOLUMEDROL 40 MG/2 ML [Concomitant]
     Dosage: 80 MILLIGRAM DAILY;
     Route: 040
     Dates: start: 20130916, end: 20130916
  5. TAHOR 40 MG [Concomitant]
     Dosage: 40 MILLIGRAM DAILY;
     Route: 048
     Dates: end: 20130918
  6. ISOPTINE LP 240 MG [Concomitant]
     Dosage: 240 MILLIGRAM DAILY;
     Route: 048
  7. PRAXILENE 200 MG [Concomitant]
     Dosage: 400 MILLIGRAM DAILY;
     Route: 048
     Dates: end: 20130918
  8. KARDEGIC [Concomitant]
     Dosage: 75 MILLIGRAM DAILY;
     Route: 048
  9. APROVEL 300 MG [Concomitant]
     Dosage: 300 MILLIGRAM DAILY;
     Route: 048
     Dates: end: 20130918

REACTIONS (2)
  - Renal failure acute [Recovered/Resolved]
  - Drug interaction [Recovered/Resolved]
